FAERS Safety Report 5369032-3 (Version None)
Quarter: 2007Q2

REPORT INFORMATION
  Report Type: 
  Country: None (occurrence: None)
  Receive Date: 20070621
  Receipt Date: 20070604
  Transmission Date: 20071010
  Serious: Yes (Other)
  Sender: FDA-Public Use
  Company Number: CIO07008653

PATIENT
  Age: 63 Year
  Sex: Female
  Weight: 57.6 kg

DRUGS (2)
  1. VAPORUB, FORM/VERSION UNKNOWN(CAMPHOR 129-150 MG, CEDAR LEAF OIL UNKNO [Suspect]
     Indication: NASOPHARYNGITIS
     Dosage: 1 APPLIC, 1/DAY FOR 1 DAY, TOPICAL
     Route: 061
     Dates: start: 20070531, end: 20070531
  2. ANTIHYPERTENSIVES [Concomitant]

REACTIONS (7)
  - DRUG INEFFECTIVE [None]
  - DYSPNOEA [None]
  - FEAR [None]
  - FLUID RETENTION [None]
  - IMPAIRED WORK ABILITY [None]
  - PHARYNGEAL OEDEMA [None]
  - SWOLLEN TONGUE [None]
